FAERS Safety Report 10152135 (Version 2)
Quarter: 2014Q2

REPORT INFORMATION
  Report Type: Spontaneous
  Country: US (occurrence: US)
  Receive Date: 20140505
  Receipt Date: 20140509
  Transmission Date: 20141212
  Serious: Yes (Hospitalization, Other)
  Sender: FDA-Public Use
  Company Number: US-BAYER-2014-064382

PATIENT
  Age: 37 Year
  Sex: Female

DRUGS (14)
  1. YAZ [Suspect]
  2. YASMIN [Suspect]
  3. DITROPAN [Concomitant]
     Dosage: UNK
     Dates: start: 20060714
  4. WELLBUTRIN [Concomitant]
     Dosage: UNK
     Dates: start: 20060714
  5. CIPRO [Concomitant]
     Dosage: UNK
     Dates: start: 20060714
  6. AMBIEN [Concomitant]
     Dosage: UNK
     Dates: start: 20060714
  7. XANAX [Concomitant]
     Dosage: UNK
     Dates: start: 20060714
  8. NAPROXEN SOD [Concomitant]
     Dosage: 550 MG, UNK
  9. RANITIDINE [Concomitant]
     Dosage: 300 MG, UNK
  10. ALPRAZOLAM [Concomitant]
     Dosage: 1 MG, UNK
  11. LORTAB [Concomitant]
     Dosage: 7.5 MG, UNK
  12. NITROFURANTOIN [Concomitant]
     Dosage: 100 MG, UNK
  13. COMBIVENT [Concomitant]
  14. PROPOX-N [Concomitant]
     Dosage: 65 MG, UNK

REACTIONS (5)
  - Deep vein thrombosis [None]
  - Deep vein thrombosis [None]
  - Thrombophlebitis superficial [None]
  - Gallbladder disorder [None]
  - Injury [None]
